FAERS Safety Report 7765555-8 (Version None)
Quarter: 2011Q3

REPORT INFORMATION
  Report Type: 
  Country: None (occurrence: None)
  Receive Date: 20110921
  Receipt Date: 20110909
  Transmission Date: 20111222
  Serious: Yes (Life-Threatening, Hospitalization)
  Sender: FDA-Public Use
  Company Number: US-BAYER-2011-029158

PATIENT
  Age: 23 Year
  Sex: Female
  Weight: 59 kg

DRUGS (7)
  1. ZITHROMAX [Concomitant]
     Route: 048
  2. YAZ [Suspect]
     Indication: ACNE
     Dosage: UNK
     Dates: start: 20050101, end: 20090301
  3. LORTAB [Concomitant]
     Route: 048
  4. YAZ [Suspect]
     Indication: PREMENSTRUAL SYNDROME
  5. SOLU-MEDROL [Concomitant]
     Dosage: 125 MG, UNK
     Route: 048
  6. TORADOL [Concomitant]
     Dosage: 60 MG, UNK
     Route: 030
  7. STERAPRED [Concomitant]
     Route: 048

REACTIONS (8)
  - UNEVALUABLE EVENT [None]
  - ANHEDONIA [None]
  - PAIN [None]
  - PULMONARY EMBOLISM [None]
  - CHEST PAIN [None]
  - DYSPNOEA [None]
  - ANXIETY [None]
  - GENERAL PHYSICAL HEALTH DETERIORATION [None]
